FAERS Safety Report 6906438-2 (Version None)
Quarter: 2010Q3

REPORT INFORMATION
  Report Type: 
  Country: None (occurrence: None)
  Receive Date: 20100804
  Receipt Date: 20100730
  Transmission Date: 20110219
  Serious: Yes (Hospitalization)
  Sender: FDA-Public Use
  Company Number: B0667795A

PATIENT
  Sex: Female

DRUGS (4)
  1. COMBIVIR [Suspect]
     Indication: HIV INFECTION
     Dates: start: 20090720, end: 20091105
  2. NORVIR [Suspect]
     Indication: HIV INFECTION
     Dates: start: 20090720, end: 20091105
  3. INVIRASE [Suspect]
     Indication: HIV INFECTION
     Dates: start: 20090720, end: 20091105
  4. RETROVIR [Concomitant]
     Indication: ANTIVIRAL PROPHYLAXIS
     Dosage: 1.1ML TWICE PER DAY
     Route: 048
     Dates: start: 20091105, end: 20091217

REACTIONS (3)
  - DRUG EXPOSURE DURING PREGNANCY [None]
  - EOSINOPHILIA [None]
  - MATERNAL DRUGS AFFECTING FOETUS [None]
